FAERS Safety Report 6152941-5 (Version None)
Quarter: 2009Q2

REPORT INFORMATION
  Report Type: 
  Country: None (occurrence: None)
  Receive Date: 20090413
  Receipt Date: 20080630
  Transmission Date: 20091009
  Serious: Yes (Hospitalization)
  Sender: FDA-Public Use
  Company Number: JP-PFIZER INC-2008055151

PATIENT
  Sex: Female
  Weight: 57 kg

DRUGS (6)
  1. SUNITINIB MALATE [Suspect]
     Indication: RENAL CANCER METASTATIC
     Dosage: 25 MG, 1X/DAY
     Route: 048
     Dates: start: 20060614
  2. ALLOPURINOL [Interacting]
     Indication: HYPERURICAEMIA
     Dosage: 100 MG, 1X/DAY
     Route: 048
     Dates: start: 20080617, end: 20080630
  3. URALYT-U [Concomitant]
     Indication: HYPERURICAEMIA
     Dosage: 3 G, 1X/DAY
     Route: 048
     Dates: start: 20080617, end: 20080630
  4. BLOPRESS [Concomitant]
     Indication: HYPERTENSION
     Dosage: 4 MG, 1X/DAY
     Dates: start: 20080604, end: 20080630
  5. THYRADIN S [Concomitant]
     Dosage: UNK
     Route: 048
     Dates: start: 20080604
  6. DERMOVATE [Concomitant]
     Route: 061
     Dates: start: 20080501, end: 20080703

REACTIONS (1)
  - DRUG ERUPTION [None]
